FAERS Safety Report 10143304 (Version 2)
Quarter: 2014Q2

REPORT INFORMATION
  Report Type: Spontaneous
  Country: BR (occurrence: BR)
  Receive Date: 20140430
  Receipt Date: 20140430
  Transmission Date: 20141212
  Serious: Yes (Hospitalization)
  Sender: FDA-Public Use
  Company Number: BR-ASTRAZENECA-2014SE17256

PATIENT
  Sex: Female

DRUGS (7)
  1. ATACAND [Suspect]
     Indication: CARDIAC DISORDER
     Route: 048
  2. SELOZOK [Suspect]
     Route: 048
  3. BRILINTA [Suspect]
     Indication: DEVICE OCCLUSION
     Route: 048
     Dates: start: 20130217, end: 20140227
  4. VASOGARD [Concomitant]
     Indication: VASODILATATION
  5. VYTORIN [Concomitant]
     Indication: BLOOD CHOLESTEROL ABNORMAL
  6. ASPIRINA PREVENT [Concomitant]
     Indication: BLOOD TEST ABNORMAL
  7. ASPIRINA PREVENT [Concomitant]
     Indication: ABDOMINAL DISCOMFORT

REACTIONS (2)
  - Coronary artery occlusion [Recovered/Resolved]
  - Peripheral swelling [Recovered/Resolved]
